FAERS Safety Report 8624563-5 (Version None)
Quarter: 2012Q3

REPORT INFORMATION
  Report Type: 
  Country: None (occurrence: None)
  Receive Date: 20120827
  Receipt Date: 20120821
  Transmission Date: 20120928
  Serious: Yes (Other)
  Sender: FDA-Public Use
  Company Number: CA-JNJFOC-20120810481

PATIENT
  Sex: Male
  Weight: 71.7 kg

DRUGS (5)
  1. PREDNISONE TAB [Concomitant]
     Route: 048
  2. NAPROXEN [Concomitant]
     Route: 065
  3. REMICADE [Suspect]
     Route: 042
     Dates: start: 20120220
  4. METHOTREXATE [Concomitant]
     Route: 058
  5. REMICADE [Suspect]
     Indication: RHEUMATOID ARTHRITIS
     Dosage: HAD HIS 4TH INFUSION ON 25-MAY-12
     Route: 042
     Dates: start: 20120525

REACTIONS (1)
  - BENIGN PROSTATIC HYPERPLASIA [None]
